FAERS Safety Report 8251788-3 (Version None)
Quarter: 2012Q2

REPORT INFORMATION
  Report Type: 
  Country: None (occurrence: None)
  Receive Date: 20120402
  Receipt Date: 20120326
  Transmission Date: 20120825
  Serious: Yes (Other)
  Sender: FDA-Public Use
  Company Number: US-US-EMD SERONO, INC.-7119291

PATIENT
  Sex: Female

DRUGS (7)
  1. BACLOFEN [Concomitant]
     Indication: PRODUCT USED FOR UNKNOWN INDICATION
  2. REBIF [Suspect]
     Indication: MULTIPLE SCLEROSIS
     Route: 058
     Dates: start: 20120315
  3. LYRICA [Concomitant]
     Indication: PRODUCT USED FOR UNKNOWN INDICATION
  4. METFORMIN HCL [Concomitant]
     Indication: PRODUCT USED FOR UNKNOWN INDICATION
  5. GABAPENTIN [Suspect]
     Indication: PRODUCT USED FOR UNKNOWN INDICATION
     Dates: start: 20120201
  6. PERINDOPRIL ERBUMINE [Concomitant]
     Indication: HYPERTENSION
  7. LEVOTHYROXINE SODIUM [Concomitant]
     Indication: HYPOTHYROIDISM
     Dates: start: 20100101

REACTIONS (12)
  - FEELING OF BODY TEMPERATURE CHANGE [None]
  - HEART RATE DECREASED [None]
  - RESTLESSNESS [None]
  - INJECTION SITE PAIN [None]
  - DIZZINESS [None]
  - SOMNOLENCE [None]
  - CHILLS [None]
  - FATIGUE [None]
  - INJECTION SITE URTICARIA [None]
  - PYREXIA [None]
  - BLOOD PRESSURE ABNORMAL [None]
  - INJECTION SITE HAEMATOMA [None]
